FAERS Safety Report 10203677 (Version 1)
Quarter: 2014Q2

REPORT INFORMATION
  Report Type: Spontaneous
  Country: US (occurrence: US)
  Receive Date: 20140529
  Receipt Date: 20140529
  Transmission Date: 20141212
  Serious: Yes (Hospitalization)
  Sender: FDA-Public Use
  Company Number: US-JNJFOC-20140514260

PATIENT
  Age: 44 Year
  Sex: Male

DRUGS (6)
  1. REMICADE [Suspect]
     Indication: CROHN^S DISEASE
     Route: 042
     Dates: start: 20140519
  2. REMICADE [Suspect]
     Indication: CROHN^S DISEASE
     Route: 042
     Dates: start: 20140509
  3. PAXIL [Concomitant]
     Route: 065
  4. TRAZODONE [Concomitant]
     Route: 065
  5. PENTASA [Concomitant]
     Route: 065
  6. PREDNISONE [Concomitant]
     Route: 065

REACTIONS (4)
  - Hallucination [Not Recovered/Not Resolved]
  - Confusional state [Not Recovered/Not Resolved]
  - Agitation [Not Recovered/Not Resolved]
  - Delusion [Not Recovered/Not Resolved]
